FAERS Safety Report 17872308 (Version 1)
Quarter: 2020Q2

REPORT INFORMATION
  Report Type: Spontaneous
  Country: JP (occurrence: JP)
  Receive Date: 20200608
  Receipt Date: 20200608
  Transmission Date: 20200714
  Serious: Yes (Death, Other)
  Sender: FDA-Public Use
  Company Number: JP-BRACCO-2020JP02295

PATIENT
  Age: 69 Year
  Sex: Male

DRUGS (3)
  1. SOLACET F [Concomitant]
     Active Substance: CALCIUM CHLORIDE\POTASSIUM CHLORIDE\SODIUM ACETATE\SODIUM CHLORIDE
     Dosage: 1000ML PER DAILY
     Dates: start: 20200416, end: 20200420
  2. PREDONINE [Concomitant]
     Active Substance: PREDNISOLONE
     Dosage: 10MG PER DAILY
     Dates: start: 20200416, end: 20200420
  3. IOPAMIRON [Suspect]
     Active Substance: IOPAMIDOL
     Indication: COMPUTERISED TOMOGRAM
     Dosage: 100ML,ONCE
     Route: 042
     Dates: start: 20200420, end: 20200420

REACTIONS (1)
  - Anaphylactic shock [Fatal]

NARRATIVE: CASE EVENT DATE: 20200420
